FAERS Safety Report 8588089-X (Version None)
Quarter: 2012Q3

REPORT INFORMATION
  Report Type: 
  Country: None (occurrence: None)
  Receive Date: 20120813
  Receipt Date: 20120810
  Transmission Date: 20120928
  Serious: Yes (Other)
  Sender: FDA-Public Use
  Company Number: US-PFIZER INC-2012190642

PATIENT
  Sex: Female

DRUGS (2)
  1. ATENOLOL [Concomitant]
     Dosage: UNK
  2. PROCARDIA XL [Suspect]
     Indication: HYPERTENSION
     Dosage: 30 MG, 1X/DAY
     Route: 048
     Dates: start: 20120725

REACTIONS (4)
  - HYPERTENSION [None]
  - FAECES DISCOLOURED [None]
  - ABDOMINAL PAIN UPPER [None]
  - NAUSEA [None]
